FAERS Safety Report 4341082-5 (Version None)
Quarter: 2004Q2

REPORT INFORMATION
  Report Type: 
  Country: None (occurrence: None)
  Receive Date: 20040419
  Receipt Date: 20040319
  Transmission Date: 20050107
  Serious: Yes (Life-Threatening)
  Sender: FDA-Public Use
  Company Number: JP-ROCHE-362423

PATIENT
  Age: 53 Year
  Sex: Male
  Weight: 55 kg

DRUGS (8)
  1. VESANOID [Suspect]
     Route: 048
     Dates: start: 20040118, end: 20040210
  2. VESANOID [Suspect]
     Route: 048
     Dates: start: 20040214, end: 20040220
  3. IDAMYCIN [Concomitant]
     Dates: start: 20040114, end: 20040116
  4. CYTARABINE [Concomitant]
     Dates: start: 20040114, end: 20040118
  5. ITRIZOLE [Concomitant]
     Route: 048
     Dates: start: 20040114, end: 20040220
  6. MAXIPIME [Concomitant]
     Dates: start: 20040114, end: 20040120
  7. FRAGMIN [Concomitant]
     Dates: start: 20040114, end: 20040225
  8. ALLOPURINOL [Concomitant]
     Dates: start: 20040114, end: 20040217

REACTIONS (4)
  - DEEP VEIN THROMBOSIS [None]
  - HYPOXIA [None]
  - PHLEBOTHROMBOSIS [None]
  - RETINOIC ACID SYNDROME [None]
